FAERS Safety Report 24791958 (Version 1)
Quarter: 2024Q4

REPORT INFORMATION
  Report Type: Spontaneous
  Country: GB (occurrence: GB)
  Receive Date: 20241231
  Receipt Date: 20241231
  Transmission Date: 20250115
  Serious: Yes (Other)
  Sender: AUROBINDO
  Company Number: GB-MHRA-34209935

PATIENT
  Age: 64 Year

DRUGS (1)
  1. PREGABALIN [Suspect]
     Active Substance: PREGABALIN
     Indication: Product used for unknown indication
     Dosage: 150 MILLIGRAM
     Route: 065

REACTIONS (5)
  - Swollen tongue [Unknown]
  - Paraesthesia [Unknown]
  - Pain in extremity [Unknown]
  - Balance disorder [Unknown]
  - Photophobia [Unknown]
